FAERS Safety Report 5366788-0 (Version None)
Quarter: 2007Q2

REPORT INFORMATION
  Report Type: 
  Country: None (occurrence: None)
  Receive Date: 20070622
  Receipt Date: 20060627
  Transmission Date: 20071010
  Serious: No
  Sender: FDA-Public Use
  Company Number: US-ASTRAZENECA-2006UW13536

PATIENT
  Age: 62 Year
  Sex: Female
  Weight: 79.4 kg

DRUGS (7)
  1. RHINOCORT [Suspect]
     Indication: VIRAL INFECTION
     Route: 045
  2. SYNTHROID [Concomitant]
  3. TOPROL-XL [Concomitant]
     Route: 048
  4. LIPITOR [Concomitant]
  5. ESTROGENIC SUBSTANCE [Concomitant]
  6. BIOFLEX [Concomitant]
  7. ALEVE [Concomitant]

REACTIONS (4)
  - DYSPNOEA [None]
  - NASAL DISCOMFORT [None]
  - NASAL DRYNESS [None]
  - NASAL OEDEMA [None]
